FAERS Safety Report 7916034-6 (Version None)
Quarter: 2011Q4

REPORT INFORMATION
  Report Type: 
  Country: None (occurrence: None)
  Receive Date: 20111115
  Receipt Date: 20111102
  Transmission Date: 20120403
  Serious: Yes (Hospitalization, Other)
  Sender: FDA-Public Use
  Company Number: DE-ELI_LILLY_AND_COMPANY-DE201111000401

PATIENT
  Age: 82 Year
  Sex: Female

DRUGS (10)
  1. PANTOPRAZOLE [Concomitant]
  2. ANTIHYPERTENSIVES [Concomitant]
  3. CALCIGEN [Concomitant]
  4. ASPIRIN [Concomitant]
  5. DICLOFENAC [Concomitant]
  6. PENTAERYTHRITOL TETRANITRATE [Concomitant]
  7. FORTEO [Suspect]
     Indication: OSTEOPOROSIS
     Dosage: UNK, QD
     Route: 058
     Dates: start: 20110912, end: 20111003
  8. TORSEMIDE [Concomitant]
  9. JUNIK [Concomitant]
  10. LYRICA [Concomitant]

REACTIONS (2)
  - HIP SURGERY [None]
  - PAIN [None]
